FAERS Safety Report 5562699-6 (Version None)
Quarter: 2007Q4

REPORT INFORMATION
  Report Type: 
  Country: None (occurrence: None)
  Receive Date: 20071211
  Receipt Date: 20071211
  Transmission Date: 20080405
  Serious: Yes (Life-Threatening)
  Sender: FDA-Public Use
  Company Number: None

PATIENT
  Age: 69 Year
  Sex: Female
  Weight: 74.8435 kg

DRUGS (1)
  1. ZOCOR [Suspect]
     Indication: BLOOD CHOLESTEROL INCREASED
     Dates: start: 20060301, end: 20060525

REACTIONS (4)
  - AMYOTROPHIC LATERAL SCLEROSIS [None]
  - CHOKING [None]
  - FALL [None]
  - PARALYSIS [None]
